FAERS Safety Report 8916593 (Version 1)
Quarter: 2012Q4

REPORT INFORMATION
  Report Type: 
  Country: IT (occurrence: IT)
  Receive Date: 20121120
  Receipt Date: 20121120
  Transmission Date: 20130627
  Serious: Yes (Hospitalization)
  Sender: FDA-Public Use
  Company Number: IT-SANOFI-AVENTIS-2012SA082799

PATIENT
  Age: 59 Year
  Sex: Male

DRUGS (7)
  1. LANTUS [Suspect]
     Indication: DIABETES MELLITUS
     Route: 065
     Dates: start: 20100101
  2. INSULIN HUMAN [Suspect]
     Indication: DIABETES MELLITUS
     Route: 058
     Dates: start: 20100101
  3. ASCRIPTIN [Concomitant]
     Route: 048
  4. RAMIPRIL [Concomitant]
     Route: 048
  5. TICLOPIDINE HYDROCHLORIDE [Concomitant]
     Route: 048
  6. ESKIM [Concomitant]
     Dosage: strength: 1000 mg
     Route: 048
  7. ATORVASTATIN CALCIUM [Concomitant]
     Route: 048

REACTIONS (3)
  - Vomiting [Recovered/Resolved]
  - Hypoglycaemia [Recovered/Resolved]
  - Confusional state [Recovered/Resolved]
